FAERS Safety Report 16779491 (Version 4)
Quarter: 2021Q4

REPORT INFORMATION
  Report Type: Spontaneous
  Country: US (occurrence: US)
  Receive Date: 20190906
  Receipt Date: 20211102
  Transmission Date: 20220303
  Serious: Yes (Hospitalization)
  Sender: FDA-Public Use
  Company Number: US-SA-2019SA248913

PATIENT
  Age: 56 Year
  Sex: Female

DRUGS (2)
  1. DUPIXENT [Suspect]
     Active Substance: DUPILUMAB
     Indication: Dermatitis atopic
     Dosage: 600 MG, 1X ON DAY 1
     Route: 058
     Dates: start: 20190627, end: 20190627
  2. DUPIXENT [Suspect]
     Active Substance: DUPILUMAB
     Dosage: 300 MG, QOW ON DAY 15
     Route: 058
     Dates: start: 20190711

REACTIONS (3)
  - Herpes zoster [Unknown]
  - Pruritus [Unknown]
  - Skin atrophy [Unknown]
